FAERS Safety Report 4735731-7 (Version None)
Quarter: 2005Q3

REPORT INFORMATION
  Report Type: 
  Country: None (occurrence: None)
  Receive Date: 20050803
  Receipt Date: 20050708
  Transmission Date: 20060218
  Serious: Yes (Other)
  Sender: FDA-Public Use
  Company Number: USA0507102310

PATIENT
  Age: 72 Year
  Sex: Female

DRUGS (1)
  1. HUMULIN N [Suspect]
     Dates: start: 19900101

REACTIONS (6)
  - ABDOMINAL PAIN [None]
  - LEUKAEMIA [None]
  - OEDEMA PERIPHERAL [None]
  - PHARMACEUTICAL PRODUCT COMPLAINT [None]
  - SPLEEN DISORDER [None]
  - VEIN DISORDER [None]
